FAERS Safety Report 13260564 (Version 1)
Quarter: 2017Q1

REPORT INFORMATION
  Report Type: Spontaneous
  Country: US (occurrence: US)
  Receive Date: 20170222
  Receipt Date: 20170222
  Transmission Date: 20170428
  Serious: No
  Sender: FDA-Public Use
  Company Number: US-BIOMARINAP-US-2017-112813

PATIENT
  Sex: Female
  Weight: 16 kg

DRUGS (1)
  1. KUVAN [Suspect]
     Active Substance: SAPROPTERIN DIHYDROCHLORIDE
     Indication: PHENYLKETONURIA
     Dosage: 300 MG, UNK
     Route: 048
     Dates: start: 20170110

REACTIONS (3)
  - Pyrexia [Unknown]
  - Vomiting [Unknown]
  - Influenza [Unknown]
